FAERS Safety Report 21572501 (Version 6)
Quarter: 2022Q4

REPORT INFORMATION
  Report Type: Spontaneous
  Country: US (occurrence: US)
  Receive Date: 20221109
  Receipt Date: 20221224
  Transmission Date: 20230112
  Serious: Yes (Other)
  Sender: FDA-Public Use
  Company Number: US-002147023-NVSC2022US252803

PATIENT
  Age: 18 Year
  Sex: Female
  Weight: 51.3 kg

DRUGS (1)
  1. LUTATHERA [Suspect]
     Active Substance: LUTETIUM OXODOTREOTIDE LU-177
     Indication: Chondrosarcoma
     Dosage: 200 MCI (INITIAL ROUND)
     Route: 042
     Dates: start: 20220907

REACTIONS (3)
  - Chondrosarcoma [Unknown]
  - Malignant neoplasm progression [Unknown]
  - Product use in unapproved indication [Unknown]

NARRATIVE: CASE EVENT DATE: 20221202
